FAERS Safety Report 5612138-1 (Version None)
Quarter: 2008Q1

REPORT INFORMATION
  Report Type: 
  Country: None (occurrence: None)
  Receive Date: 20080204
  Receipt Date: 20080201
  Transmission Date: 20080703
  Serious: Yes (Disabling, Other)
  Sender: FDA-Public Use
  Company Number: ZA-BRISTOL-MYERS SQUIBB COMPANY-14051254

PATIENT
  Age: 33 Year
  Sex: Female

DRUGS (4)
  1. GLUCOPHAGE [Suspect]
     Indication: TYPE 2 DIABETES MELLITUS
     Dosage: INITIAL DOSE-1000 MG ON 04-JAN-2008.
     Dates: start: 20080107
  2. MOLIPAXIN [Suspect]
     Indication: ANXIETY
     Dates: start: 20070901
  3. ELTROXIN [Suspect]
     Indication: HYPOTHYROIDISM
     Dates: start: 20080107
  4. ATORVASTATIN [Concomitant]
     Indication: BLOOD CHOLESTEROL INCREASED
     Dates: start: 20080107

REACTIONS (1)
  - VISUAL DISTURBANCE [None]
